FAERS Safety Report 17868632 (Version 1)
Quarter: 2020Q2

REPORT INFORMATION
  Report Type: Spontaneous
  Country: JP (occurrence: JP)
  Receive Date: 20200606
  Receipt Date: 20200606
  Transmission Date: 20200714
  Serious: Yes (Other)
  Sender: FDA-Public Use
  Company Number: NVSC2020JP157677

PATIENT
  Age: 86 Year
  Sex: Female

DRUGS (5)
  1. BORTEZOMIB. [Suspect]
     Active Substance: BORTEZOMIB
     Indication: PLASMA CELL MYELOMA
     Dosage: 1.3 MG (1 MG/M2), (DAYS 1?4) THREE COURSES
     Route: 065
  2. BORTEZOMIB. [Suspect]
     Active Substance: BORTEZOMIB
     Dosage: 1.7 MG (1.3 MG/M2) (DAYS 1, 8, 15, 22) SEVEN COURSES
     Route: 065
  3. DEXAMETHASONE. [Suspect]
     Active Substance: DEXAMETHASONE
     Indication: PLASMA CELL MYELOMA
     Dosage: 12 MG (DAY 1, 8, 15, 22), (ONCE WEEKLY FOR 4 WEEKS, THEN DISCONTINUED FOR 5 WEEKS)
     Route: 065
  4. MELPHALAN. [Suspect]
     Active Substance: MELPHALAN
     Indication: PLASMA CELL MYELOMA
     Dosage: 8 MG (DAYS 1?4), THREE COURSES
     Route: 065
  5. PREDNISOLONE. [Suspect]
     Active Substance: PREDNISOLONE
     Indication: PLASMA CELL MYELOMA
     Dosage: 25 MG (DAYS 1,8, 22), THREE COURSES
     Route: 065

REACTIONS (1)
  - Atrioventricular block complete [Unknown]
